FAERS Safety Report 10184055 (Version 1)
Quarter: 2014Q2

REPORT INFORMATION
  Report Type: Spontaneous
  Country: SK (occurrence: SK)
  Receive Date: 20140520
  Receipt Date: 20140520
  Transmission Date: 20141212
  Serious: Yes (Death, Hospitalization)
  Sender: FDA-Public Use
  Company Number: SK-GLAXOSMITHKLINE-B0995037A

PATIENT
  Age: 60 Year
  Sex: Female

DRUGS (7)
  1. TYVERB [Suspect]
     Indication: BREAST CANCER
     Dosage: 1500MG PER DAY
     Route: 065
     Dates: start: 201212, end: 201401
  2. LETROZOLE [Suspect]
     Indication: BREAST CANCER
     Dosage: 2.5MG PER DAY
     Route: 065
     Dates: start: 201212, end: 201401
  3. ZOLEDRONIC ACID [Suspect]
     Indication: BREAST CANCER
     Route: 065
     Dates: start: 201212, end: 201401
  4. LACIDIPIN [Concomitant]
  5. ZOLPIDEM [Concomitant]
  6. DICLOFENAC [Concomitant]
  7. VINORELBINE [Concomitant]
     Dates: start: 201402

REACTIONS (7)
  - Epilepsy [Recovered/Resolved]
  - Diarrhoea [Recovered/Resolved]
  - Gait disturbance [Unknown]
  - Vertigo [Unknown]
  - Diplopia [Unknown]
  - Dyspnoea [Unknown]
  - General physical health deterioration [Fatal]
